FAERS Safety Report 22286723 (Version 3)
Quarter: 2023Q2

REPORT INFORMATION
  Report Type: Report from Study
  Country: GB (occurrence: GB)
  Receive Date: 20230505
  Receipt Date: 20230616
  Transmission Date: 20230721
  Serious: Yes (Death)
  Sender: FDA-Public Use
  Company Number: GB-ROCHE-3331059

PATIENT
  Age: 70 Year
  Sex: Female

DRUGS (21)
  1. DOCETAXEL [Suspect]
     Active Substance: DOCETAXEL
     Indication: Breast cancer
     Dosage: FREQUENCY : 1 IN 3 WEEKS, DURATION : 63 DAYS
     Route: 040
     Dates: start: 20151009, end: 20151210
  2. DOCETAXEL [Suspect]
     Active Substance: DOCETAXEL
     Dosage: FREQUENCY : 1 IN 3 WEEKS, DURATION : 30 DAYS
     Route: 040
     Dates: start: 20160111, end: 20160209
  3. PERTUZUMAB [Suspect]
     Active Substance: PERTUZUMAB
     Indication: Breast cancer
     Dosage: FREQUENCY : 1 IN 3 WEEKS, DURATION: 533 DAYS
     Route: 042
     Dates: start: 20151029, end: 20170413
  4. PERTUZUMAB [Suspect]
     Active Substance: PERTUZUMAB
     Dosage: OD, DURATION: 1 DAY
     Route: 042
     Dates: start: 20151008, end: 20151008
  5. PERTUZUMAB [Suspect]
     Active Substance: PERTUZUMAB
     Route: 042
     Dates: start: 20170921, end: 20180329
  6. TRASTUZUMAB [Suspect]
     Active Substance: TRASTUZUMAB
     Indication: Breast cancer
     Dosage: FREQUENCY : 1 IN 3 WEEKS, THERAPY END DATE : NASK
     Route: 041
     Dates: start: 20171012, end: 20180801
  7. TRASTUZUMAB [Suspect]
     Active Substance: TRASTUZUMAB
     Dosage: FREQUENCY : 1 IN 3 WEEKS, DURATION 1 DAY
     Route: 041
     Dates: start: 20151008, end: 20151008
  8. TRASTUZUMAB [Suspect]
     Active Substance: TRASTUZUMAB
     Dosage: FREQUENCY : 1 IN 3 WEEKS, THERAPY START DATE : NASK
     Route: 041
     Dates: end: 20170922
  9. TRASTUZUMAB [Suspect]
     Active Substance: TRASTUZUMAB
     Route: 041
     Dates: start: 20151029, end: 20170413
  10. BUTYLSCOPOLAMINE BROMIDE [Concomitant]
     Active Substance: BUTYLSCOPOLAMINE BROMIDE
     Indication: Product used for unknown indication
     Dosage: 10 MG
     Route: 048
  11. DEXAMETHASONE [Concomitant]
     Active Substance: DEXAMETHASONE
     Indication: Headache
  12. DOXAZOSIN [Concomitant]
     Active Substance: DOXAZOSIN MESYLATE
     Indication: Product used for unknown indication
     Dosage: 4 MILLIGRAM DAILY; 2 MG, BD
     Route: 048
  13. ESOMEPRAZOLE [Concomitant]
     Active Substance: ESOMEPRAZOLE
     Indication: Product used for unknown indication
     Dosage: 20 ML DAILY; 20 ML, OD
     Route: 048
     Dates: end: 20200101
  14. FUROSEMIDE [Concomitant]
     Active Substance: FUROSEMIDE
     Indication: Product used for unknown indication
     Dosage: 20 MILLIGRAM DAILY; 20 MG, OD
     Route: 048
     Dates: end: 20200101
  15. HYDROCHLOROTHIAZIDE [Concomitant]
     Active Substance: HYDROCHLOROTHIAZIDE
     Indication: Product used for unknown indication
     Dosage: OD
     Route: 048
  16. METOPROLOL [Concomitant]
     Active Substance: METOPROLOL
     Indication: Product used for unknown indication
     Dosage: 25 MILLIGRAM DAILY; 25 MG, OD
     Route: 048
     Dates: end: 20170522
  17. ONDANSETRON [Concomitant]
     Active Substance: ONDANSETRON
     Indication: Nausea
     Dosage: 2 MG
     Route: 048
  18. PERINDOPRIL [Concomitant]
     Active Substance: PERINDOPRIL
     Indication: Product used for unknown indication
     Dosage: 4 MILLIGRAM DAILY; 4 MG, OD
     Route: 048
     Dates: start: 20161123
  19. PROCHLORPERAZINE [Concomitant]
     Active Substance: PROCHLORPERAZINE
     Indication: Nausea
  20. SYMBICORT [Concomitant]
     Active Substance: BUDESONIDE\FORMOTEROL FUMARATE DIHYDRATE
     Indication: Product used for unknown indication
     Dosage: 100.00 PUFF, BD
     Route: 065
  21. TELMISARTAN [Concomitant]
     Active Substance: TELMISARTAN
     Indication: Product used for unknown indication
     Dosage: OD
     Route: 048

REACTIONS (1)
  - Metastatic neoplasm [Fatal]

NARRATIVE: CASE EVENT DATE: 20200101
